FAERS Safety Report 17211819 (Version 4)
Quarter: 2020Q1

REPORT INFORMATION
  Report Type: Report from Study
  Country: US (occurrence: US)
  Receive Date: 20191230
  Receipt Date: 20200211
  Transmission Date: 20200409
  Serious: Yes (Other)
  Sender: FDA-Public Use
  Company Number: US-SA-2019SA356776

PATIENT
  Age: 33 Year
  Sex: Female

DRUGS (2)
  1. ALEMTUZUMAB [Suspect]
     Active Substance: ALEMTUZUMAB
     Dosage: 12 MG, QD
     Route: 042
     Dates: start: 20191216, end: 20191217
  2. ALEMTUZUMAB [Suspect]
     Active Substance: ALEMTUZUMAB
     Indication: MULTIPLE SCLEROSIS
     Dosage: 12 MG, QD
     Route: 042
     Dates: start: 20191209, end: 20191211

REACTIONS (21)
  - Wound [Unknown]
  - Clumsiness [Unknown]
  - Heart rate irregular [Not Recovered/Not Resolved]
  - Insomnia [Unknown]
  - Asphyxia [Not Recovered/Not Resolved]
  - Bradycardia [Unknown]
  - Rash [Recovering/Resolving]
  - Rash [Recovered/Resolved]
  - Dry skin [Recovered/Resolved]
  - Haemorrhage [Unknown]
  - Sneezing [Unknown]
  - Target skin lesion [Recovering/Resolving]
  - Cough [Unknown]
  - Pruritus [Recovering/Resolving]
  - Steroid withdrawal syndrome [Unknown]
  - Petechiae [Unknown]
  - Limb injury [Unknown]
  - Rash erythematous [Recovered/Resolved]
  - Accident at home [Unknown]
  - Memory impairment [Unknown]
  - Neuralgia [Unknown]

NARRATIVE: CASE EVENT DATE: 201912
